FAERS Safety Report 21518956 (Version 4)
Quarter: 2023Q2

REPORT INFORMATION
  Report Type: Report from Study
  Country: US (occurrence: US)
  Receive Date: 20221028
  Receipt Date: 20230403
  Transmission Date: 20230721
  Serious: Yes (Other)
  Sender: FDA-Public Use
  Company Number: US-ABBVIE-4178216

PATIENT
  Age: 53 Year
  Sex: Female

DRUGS (6)
  1. RINVOQ [Suspect]
     Active Substance: UPADACITINIB
     Indication: Rheumatoid arthritis
     Route: 048
     Dates: start: 20191104, end: 20220512
  2. RINVOQ [Suspect]
     Active Substance: UPADACITINIB
     Indication: Rheumatoid arthritis
     Route: 048
     Dates: start: 20191104
  3. RINVOQ [Suspect]
     Active Substance: UPADACITINIB
     Indication: Rheumatoid arthritis
     Route: 048
     Dates: start: 20191104, end: 202303
  4. PFIZER-BIONTECH COVID-19 VACCINE [Concomitant]
     Active Substance: TOZINAMERAN
     Indication: COVID-19 immunisation
     Dosage: FIRST DOSE?1 IN ONCE
     Route: 030
     Dates: start: 20210407, end: 20210407
  5. PFIZER-BIONTECH COVID-19 VACCINE [Concomitant]
     Active Substance: TOZINAMERAN
     Indication: COVID-19 immunisation
     Dosage: SECOND DOSE?1 IN ONCE
     Route: 030
     Dates: start: 20210428, end: 20210428
  6. PFIZER-BIONTECH COVID-19 VACCINE [Concomitant]
     Active Substance: TOZINAMERAN
     Indication: COVID-19 immunisation
     Dosage: THIRD DOSE?1 IN ONCE
     Route: 030
     Dates: start: 20210927, end: 20210927

REACTIONS (19)
  - Knee arthroplasty [Unknown]
  - Arthropathy [Unknown]
  - Drug ineffective [Unknown]
  - Stress [Unknown]
  - Respiratory disorder [Unknown]
  - Rheumatoid arthritis [Unknown]
  - Blood disorder [Unknown]
  - Fatigue [Unknown]
  - Hip arthroplasty [Unknown]
  - SARS-CoV-2 test positive [Unknown]
  - Musculoskeletal disorder [Unknown]
  - Swelling [Unknown]
  - Musculoskeletal disorder [Unknown]
  - Anxiety [Unknown]
  - Family stress [Unknown]
  - Lethargy [Unknown]
  - Osteoarthritis [Unknown]
  - Immunodeficiency [Unknown]
  - Rheumatoid arthritis [Unknown]

NARRATIVE: CASE EVENT DATE: 20220501
